FAERS Safety Report 5456377-1 (Version None)
Quarter: 2007Q3

REPORT INFORMATION
  Report Type: 
  Country: None (occurrence: None)
  Receive Date: 20070917
  Receipt Date: 20070917
  Transmission Date: 20080115
  Serious: Yes (Other)
  Sender: FDA-Public Use
  Company Number: None

PATIENT
  Sex: Female
  Weight: 72.5755 kg

DRUGS (3)
  1. OXYCODONE HCL [Suspect]
     Dosage: 40MG 1 EV 12HRS
     Dates: start: 20070731, end: 20070830
  2. OXYCODONE HCL [Suspect]
     Dosage: 40MG 1 EV 12HRS
     Dates: start: 20070508
  3. OXYCODONE HCL [Suspect]
     Dosage: 40MG 1 EV 12HRS
     Dates: start: 20070604

REACTIONS (4)
  - DIZZINESS [None]
  - HEADACHE [None]
  - NAUSEA [None]
  - PHARMACEUTICAL PRODUCT COMPLAINT [None]
